FAERS Safety Report 6713678-4 (Version None)
Quarter: 2010Q2

REPORT INFORMATION
  Report Type: 
  Country: None (occurrence: None)
  Receive Date: 20100504
  Receipt Date: 20100426
  Transmission Date: 20101027
  Serious: Yes (Other)
  Sender: FDA-Public Use
  Company Number: 571655

PATIENT
  Age: 61 Year
  Sex: Female
  Weight: 90 kg

DRUGS (14)
  1. HEPARIN SODIUM INJECTION [Suspect]
     Indication: DRUG USE FOR UNKNOWN INDICATION
     Dosage: 7100.0 UNITS, INTRAVENOUS BOLUS ; 1600.0 UNITS, INTRAVENOUS BOLUS
     Route: 040
  2. ADVAIR DISKUS 100/50 [Concomitant]
  3. (ALMAGEL /00909601/) [Concomitant]
  4. ATIVAN [Concomitant]
  5. COUMADIN [Concomitant]
  6. EFFEXOR XR [Concomitant]
  7. ELAVIL [Concomitant]
  8. (FUROSEMIDE) [Concomitant]
  9. LIPITOR [Concomitant]
  10. LYRICA [Concomitant]
  11. (PANTOLOC /01263201/) [Concomitant]
  12. (QUININE) [Concomitant]
  13. SENOKOT [Concomitant]
  14. VENTOLIN [Concomitant]

REACTIONS (4)
  - PNEUMONIA [None]
  - PRURITUS GENERALISED [None]
  - RASH [None]
  - TROPONIN INCREASED [None]
